FAERS Safety Report 19089611 (Version 1)
Quarter: 2021Q2

REPORT INFORMATION
  Report Type: Spontaneous
  Country: US (occurrence: US)
  Receive Date: 20210403
  Receipt Date: 20210403
  Transmission Date: 20210717
  Serious: No
  Sender: FDA-Public Use
  Company Number: US-JNJFOC-20210356122

PATIENT
  Age: 56 Year
  Sex: Male
  Weight: 106.59 kg

DRUGS (1)
  1. REMICADE [Suspect]
     Active Substance: INFLIXIMAB
     Indication: PRODUCT USED FOR UNKNOWN INDICATION
     Route: 042
     Dates: start: 202005, end: 202008

REACTIONS (1)
  - Pleurisy [Unknown]

NARRATIVE: CASE EVENT DATE: 20200715
